FAERS Safety Report 6290889-6 (Version None)
Quarter: 2009Q3

REPORT INFORMATION
  Report Type: 
  Country: None (occurrence: None)
  Receive Date: 20090729
  Receipt Date: 20090729
  Transmission Date: 20100115
  Serious: Yes (Disabling)
  Sender: FDA-Public Use
  Company Number: None

PATIENT
  Age: 35 Year
  Sex: Female
  Weight: 14.9687 kg

DRUGS (1)
  1. MIRENA [Suspect]
     Indication: CONTRACEPTION
     Dosage: ONGOING, ONGOING, INTRA-UTERINE
     Route: 015
     Dates: start: 20090603, end: 20090723

REACTIONS (8)
  - ALOPECIA [None]
  - ANXIETY [None]
  - CARDIAC FLUTTER [None]
  - DRUG HYPERSENSITIVITY [None]
  - HYPOAESTHESIA [None]
  - NO THERAPEUTIC RESPONSE [None]
  - PALPITATIONS [None]
  - RASH PRURITIC [None]
